FAERS Safety Report 7965696-6 (Version None)
Quarter: 2011Q4

REPORT INFORMATION
  Report Type: 
  Country: None (occurrence: None)
  Receive Date: 20111208
  Receipt Date: 20111124
  Transmission Date: 20120403
  Serious: Yes (Other)
  Sender: FDA-Public Use
  Company Number: JP-ELI_LILLY_AND_COMPANY-JP201111007904

PATIENT
  Age: 70 Year
  Sex: Female

DRUGS (2)
  1. ALIMTA [Suspect]
     Indication: LARGE CELL CARCINOMA OF THE RESPIRATORY TRACT STAGE UNSPECIFIED
     Dosage: UNK
     Route: 042
  2. CARBOPLATIN [Concomitant]
     Indication: LARGE CELL CARCINOMA OF THE RESPIRATORY TRACT STAGE UNSPECIFIED

REACTIONS (11)
  - DYSPHAGIA [None]
  - OPHTHALMOPLEGIA [None]
  - ASTHENIA [None]
  - BULBAR PALSY [None]
  - AREFLEXIA [None]
  - EYELID PTOSIS [None]
  - ATAXIA [None]
  - EASTERN COOPERATIVE ONCOLOGY GROUP PERFORMANCE STATUS WORSENED [None]
  - PNEUMONIA [None]
  - MILLER FISHER SYNDROME [None]
  - DYSPHONIA [None]
